FAERS Safety Report 7346010-6 (Version None)
Quarter: 2011Q1

REPORT INFORMATION
  Report Type: 
  Country: None (occurrence: None)
  Receive Date: 20110308
  Receipt Date: 20110308
  Transmission Date: 20110831
  Serious: No
  Sender: FDA-Public Use
  Company Number: None

PATIENT
  Sex: Female

DRUGS (1)
  1. FORTEO [Suspect]
     Dosage: 600 MCG/2.4ML SC INJECT 20MCG SUBCUTANEOUSLY EVERY DAY AS DIRECTED
     Route: 058

REACTIONS (3)
  - INFLUENZA [None]
  - HEART RATE INCREASED [None]
  - INSOMNIA [None]
